FAERS Safety Report 8494168-8 (Version None)
Quarter: 2012Q3

REPORT INFORMATION
  Report Type: 
  Country: None (occurrence: None)
  Receive Date: 20120709
  Receipt Date: 20120702
  Transmission Date: 20120928
  Serious: Yes (Other)
  Sender: FDA-Public Use
  Company Number: PHEH2012US010904

PATIENT
  Sex: Female
  Weight: 63.039 kg

DRUGS (11)
  1. FISH OIL [Concomitant]
     Indication: BLOOD CHOLESTEROL ABNORMAL
     Dosage: 1000 MG, QD
     Route: 048
  2. MULTI-VITAMINS [Concomitant]
     Route: 048
  3. VITAMIN D [Concomitant]
     Dosage: 50000 U, QMO
     Route: 048
  4. COMBIPATCH [Suspect]
     Indication: HORMONE REPLACEMENT THERAPY
  5. DOCUSATE SODIUM [Concomitant]
     Dosage: 100 MG, QD
     Route: 048
  6. CALCIUM D3 [Concomitant]
     Dosage: 600 MG, BID
     Route: 048
  7. COMBIPATCH [Suspect]
     Indication: OSTEOPOROSIS
     Dosage: 1 DF, 0.05/0.14 MG
     Route: 062
     Dates: start: 20090301, end: 20120501
  8. CHLORTHALIDONE [Concomitant]
     Dosage: 5 MG, QD
     Route: 048
  9. PROBIOTICS [Concomitant]
     Route: 048
  10. LOSARTAN POTASSIUM [Concomitant]
     Indication: BLOOD PRESSURE ABNORMAL
     Dosage: 100 MG, QD
     Route: 048
  11. COZAAR [Concomitant]
     Route: 048

REACTIONS (3)
  - MAMMOGRAM ABNORMAL [None]
  - BREAST MASS [None]
  - HORMONE LEVEL ABNORMAL [None]
